FAERS Safety Report 23260635 (Version 1)
Quarter: 2023Q4

REPORT INFORMATION
  Report Type: Spontaneous
  Country: CN (occurrence: CN)
  Receive Date: 20231205
  Receipt Date: 20231205
  Transmission Date: 20240110
  Serious: Yes (Hospitalization)
  Sender: FDA-Public Use
  Company Number: CN-ELI_LILLY_AND_COMPANY-CN202311014799

PATIENT
  Age: 53 Year
  Sex: Male
  Weight: 90 kg

DRUGS (4)
  1. TRULICITY [Suspect]
     Active Substance: DULAGLUTIDE
     Indication: Hyperglycaemia
     Dosage: 1.5 MG, WEEKLY (1/W)
     Route: 058
     Dates: start: 20220411, end: 20231104
  2. TRULICITY [Suspect]
     Active Substance: DULAGLUTIDE
     Indication: Delirium
  3. LOSARTAN POTASSIUM [Concomitant]
     Active Substance: LOSARTAN POTASSIUM
     Indication: Hypertension
     Dosage: 50 MG, DAILY
     Route: 048
     Dates: start: 20220411, end: 20231111
  4. METOPROLOL SUCCINATE [Concomitant]
     Active Substance: METOPROLOL SUCCINATE
     Indication: Hypertension
     Dosage: 47.5 MG, DAILY
     Route: 048
     Dates: start: 20220411, end: 20231111

REACTIONS (7)
  - Ureterolithiasis [Recovered/Resolved]
  - Hypertension [Recovered/Resolved]
  - Diabetes mellitus [Recovered/Resolved]
  - Lung disorder [Recovered/Resolved]
  - Hyperuricaemia [Recovered/Resolved]
  - Spinal osteoarthritis [Recovered/Resolved]
  - Off label use [Unknown]

NARRATIVE: CASE EVENT DATE: 20231112
